FAERS Safety Report 23965340 (Version 1)
Quarter: 2024Q2

REPORT INFORMATION
  Report Type: Spontaneous
  Country: US (occurrence: US)
  Receive Date: 20240612
  Receipt Date: 20240612
  Transmission Date: 20240716
  Serious: Yes (Life-Threatening, Hospitalization)
  Sender: FDA-Public Use
  Company Number: US-STRIDES ARCOLAB LIMITED-2023SP017931

PATIENT
  Age: 41 Year
  Sex: Female

DRUGS (6)
  1. HYDROCORTISONE [Suspect]
     Active Substance: HYDROCORTISONE\HYDROCORTISONE ACETATE
     Indication: Thyrotoxic crisis
     Dosage: UNK
     Route: 065
  2. PROPRANOLOL [Suspect]
     Active Substance: PROPRANOLOL HYDROCHLORIDE
     Indication: Thyrotoxic crisis
     Dosage: UNK
     Route: 065
  3. PROPYLTHIOURACIL [Suspect]
     Active Substance: PROPYLTHIOURACIL
     Indication: Thyrotoxic crisis
     Dosage: UNK (RECEIVED 2 DOSES)
     Route: 065
  4. CHOLESTYRAMINE [Suspect]
     Active Substance: CHOLESTYRAMINE
     Indication: Thyrotoxic crisis
     Dosage: UNK
     Route: 065
  5. POTASSIUM IODIDE [Suspect]
     Active Substance: POTASSIUM IODIDE
     Indication: Thyrotoxic crisis
     Dosage: UNK (SUPER-SATURATED)
     Route: 065
  6. NOREPINEPHRINE [Concomitant]
     Active Substance: NOREPINEPHRINE\NOREPINEPHRINE BITARTRATE
     Indication: Hypotension
     Dosage: UNK
     Route: 065

REACTIONS (2)
  - Drug ineffective [Unknown]
  - Off label use [Unknown]
